FAERS Safety Report 6425013-X (Version None)
Quarter: 2009Q4

REPORT INFORMATION
  Report Type: 
  Country: None (occurrence: None)
  Receive Date: 20091103
  Receipt Date: 20091029
  Transmission Date: 20100525
  Serious: Yes (Hospitalization)
  Sender: FDA-Public Use
  Company Number: GXKR2009DE00681

PATIENT
  Age: 84 Year
  Sex: Female

DRUGS (9)
  1. AMLODIPINE [Interacting]
     Indication: HYPERTENSION
     Dosage: 5 MG, BID
     Route: 048
  2. LISINOPRIL AND HYDROCHLOROTHIAZIDE [Suspect]
     Indication: HYPERTENSION
     Dosage: 1-0-0.5 TABLETS/DAILY
     Route: 048
     Dates: end: 20080617
  3. METOPROLOL (NGX) [Suspect]
     Indication: HYPERTENSION
     Dosage: 1-0-0.5/DAILY
     Route: 048
  4. MOXONIDINE (NGX) [Suspect]
     Indication: HYPERTENSION
     Dosage: 0.2 MG, BID
     Route: 048
  5. NITRO-SPRAY [Suspect]
     Indication: HYPERTENSION
     Dosage: 0.41 MG/DAILY
     Route: 002
     Dates: end: 20080612
  6. ASPIRIN [Concomitant]
     Indication: THROMBOSIS PROPHYLAXIS
     Dosage: 100 MG, QD
     Route: 048
     Dates: start: 20010101
  7. KEPPRA [Concomitant]
     Indication: INFARCTION
     Dosage: 500 MG, UNK
     Route: 048
  8. PANTOPRAZOLE SODIUM [Concomitant]
     Indication: GASTRITIS PROPHYLAXIS
     Dosage: 20 MG, QD
     Route: 048
  9. SIMVASTATIN [Concomitant]
     Indication: CARDIOVASCULAR EVENT PROPHYLAXIS
     Dosage: 20 MG, QD
     Route: 048

REACTIONS (1)
  - SYNCOPE [None]
